FAERS Safety Report 9939250 (Version 1)
Quarter: 2014Q1

REPORT INFORMATION
  Report Type: Report from Study
  Country: US (occurrence: US)
  Receive Date: 20140303
  Receipt Date: 20140303
  Transmission Date: 20141002
  Serious: No
  Sender: FDA-Public Use
  Company Number: US-ABBVIE-13P-163-1038698-00

PATIENT
  Age: 52 Year
  Sex: Female

DRUGS (3)
  1. HUMIRA [Suspect]
     Indication: PSORIASIS
     Dates: start: 201209
  2. LISINOPRIL [Concomitant]
     Indication: HYPERTENSION
     Dosage: DAILY
  3. PROVASTIN [Concomitant]
     Indication: BLOOD CHOLESTEROL INCREASED
     Dosage: EVERYDAY

REACTIONS (3)
  - Dry skin [Recovering/Resolving]
  - Trichorrhexis [Recovering/Resolving]
  - Pain [Recovering/Resolving]
